FAERS Safety Report 5442012-5 (Version None)
Quarter: 2007Q3

REPORT INFORMATION
  Report Type: 
  Country: None (occurrence: None)
  Receive Date: 20070904
  Receipt Date: 20070823
  Transmission Date: 20080115
  Serious: Yes (Other)
  Sender: FDA-Public Use
  Company Number: US-KINGPHARMUSA00001-K200700876

PATIENT

DRUGS (1)
  1. ALTACE [Suspect]

REACTIONS (1)
  - MYASTHENIA GRAVIS [None]
